FAERS Safety Report 7425888-1 (Version None)
Quarter: 2011Q2

REPORT INFORMATION
  Report Type: 
  Country: None (occurrence: None)
  Receive Date: 20110420
  Receipt Date: 20110228
  Transmission Date: 20111010
  Serious: Yes (Death)
  Sender: FDA-Public Use
  Company Number: DE-ASTRAZENECA-2011SE11117

PATIENT
  Sex: Male
  Weight: 65 kg

DRUGS (11)
  1. FENTANYL [Suspect]
     Dates: end: 20100211
  2. SEROQUEL [Suspect]
     Indication: VASCULAR DEMENTIA
     Route: 048
     Dates: start: 20100210, end: 20100212
  3. LORZAAR [Concomitant]
     Dates: end: 20100212
  4. LYRICA [Suspect]
     Route: 048
     Dates: start: 20100111, end: 20100213
  5. FENTANYL [Suspect]
     Dates: start: 20100212, end: 20100213
  6. HALDOL [Suspect]
     Route: 042
     Dates: start: 20100215, end: 20110216
  7. TORSEMIDE [Concomitant]
     Dates: end: 20100212
  8. JONOSTERIL [Concomitant]
     Route: 042
     Dates: start: 20100213, end: 20110216
  9. FENTANYL [Suspect]
     Dates: start: 20100214, end: 20110216
  10. FUROSEMIDE [Concomitant]
     Route: 048
     Dates: start: 20100213, end: 20110216
  11. CLEXANE [Concomitant]
     Dosage: 1 AMPOULE
     Route: 058
     Dates: start: 20100210, end: 20110216

REACTIONS (1)
  - DEATH [None]
